FAERS Safety Report 8838880 (Version 1)
Quarter: 2012Q4

REPORT INFORMATION
  Report Type: Spontaneous
  Country: US (occurrence: None)
  Receive Date: 20121011
  Receipt Date: 20121011
  Transmission Date: 20130627
  Serious: No
  Sender: FDA-Public Use
  Company Number: None

PATIENT
  Age: 77 Year
  Sex: Male

DRUGS (1)
  1. ZYTIGA [Suspect]
     Dosage: 1000 MG DAILY po
     Route: 048
     Dates: start: 20120314, end: 20121004

REACTIONS (2)
  - Alopecia [None]
  - Constipation [None]
